FAERS Safety Report 20408466 (Version 8)
Quarter: 2022Q2

REPORT INFORMATION
  Report Type: Report from Study
  Country: US (occurrence: US)
  Receive Date: 20220201
  Receipt Date: 20220621
  Transmission Date: 20220721
  Serious: Yes (Other)
  Sender: FDA-Public Use
  Company Number: US-BoehringerIngelheim-2022-BI-150209

PATIENT
  Age: 71 Year
  Sex: Male

DRUGS (2)
  1. OFEV [Suspect]
     Active Substance: NINTEDANIB
     Indication: Idiopathic pulmonary fibrosis
     Route: 048
  2. OFEV [Suspect]
     Active Substance: NINTEDANIB
     Route: 048
     Dates: start: 20220106, end: 202203

REACTIONS (12)
  - Throat cancer [Unknown]
  - Headache [Recovered/Resolved]
  - Photophobia [Not Recovered/Not Resolved]
  - Weight decreased [Not Recovered/Not Resolved]
  - Migraine [Unknown]
  - Aphonia [Unknown]
  - Speech disorder [Unknown]
  - Chronic obstructive pulmonary disease [Unknown]
  - Feeding disorder [Unknown]
  - Asthenia [Not Recovered/Not Resolved]
  - Decreased appetite [Not Recovered/Not Resolved]
  - Hypersomnia [Not Recovered/Not Resolved]

NARRATIVE: CASE EVENT DATE: 20220201
